FAERS Safety Report 5425173-3 (Version None)
Quarter: 2007Q3

REPORT INFORMATION
  Report Type: 
  Country: None (occurrence: None)
  Receive Date: 20070824
  Receipt Date: 20070821
  Transmission Date: 20080115
  Serious: Yes (Other)
  Sender: FDA-Public Use
  Company Number: AU-ASTRAZENECA-2007AP04852

PATIENT
  Age: 65 Year
  Sex: Male

DRUGS (5)
  1. ZOLADEX [Suspect]
     Indication: PROSTATE CANCER
     Route: 058
     Dates: start: 20070501, end: 20070801
  2. ASTRIX [Concomitant]
     Route: 048
  3. LIPITOR [Concomitant]
     Route: 048
  4. DAPA-TABS [Concomitant]
     Route: 048
  5. MICARDIS [Concomitant]
     Route: 048

REACTIONS (1)
  - DEEP VEIN THROMBOSIS [None]
